FAERS Safety Report 11215738 (Version 1)
Quarter: 2015Q2

REPORT INFORMATION
  Report Type: Spontaneous
  Country: US (occurrence: None)
  Receive Date: 20150623
  Receipt Date: 20150623
  Transmission Date: 20150821
  Serious: Yes (Hospitalization)
  Sender: FDA-Public Use
  Company Number: None

PATIENT
  Age: 77 Year
  Sex: Male

DRUGS (1)
  1. ZYTIGA [Suspect]
     Active Substance: ABIRATERONE ACETATE
     Indication: PROSTATE CANCER
     Dosage: 4TABS  DAILY ORAL
     Route: 048
     Dates: start: 20150122

REACTIONS (2)
  - Haemoglobin decreased [None]
  - Unevaluable event [None]

NARRATIVE: CASE EVENT DATE: 20150618
